FAERS Safety Report 4443106-3 (Version None)
Quarter: 2004Q3

REPORT INFORMATION
  Report Type: 
  Country: None (occurrence: None)
  Receive Date: 20040903
  Receipt Date: 20040628
  Transmission Date: 20050211
  Serious: Yes (Other)
  Sender: FDA-Public Use
  Company Number: 2004UW13354

PATIENT
  Age: 69 Year
  Sex: Female
  Weight: 63.5036 kg

DRUGS (6)
  1. CRESTOR [Suspect]
     Indication: BLOOD CHOLESTEROL INCREASED
     Dosage: 10 MG PO
     Route: 048
     Dates: start: 20040201
  2. AVAPRO [Concomitant]
  3. NORVASC [Concomitant]
  4. AVANDIA [Concomitant]
  5. VIOXX [Concomitant]
  6. LEVOXYL [Concomitant]

REACTIONS (2)
  - ASTHENIA [None]
  - HOT FLUSH [None]
